FAERS Safety Report 24091960 (Version 1)
Quarter: 2024Q3

REPORT INFORMATION
  Report Type: Spontaneous
  Country: DE (occurrence: DE)
  Receive Date: 20240715
  Receipt Date: 20240715
  Transmission Date: 20241017
  Serious: Yes (Death, Other)
  Sender: NOVARTIS
  Company Number: DE-002147023-NVSC2024DE145312

PATIENT
  Age: 99 Year
  Sex: Male

DRUGS (1)
  1. ENTRESTO [Suspect]
     Active Substance: SACUBITRIL\VALSARTAN
     Indication: Left ventricular failure
     Dosage: UNK
     Route: 065

REACTIONS (4)
  - Infection [Fatal]
  - Femoral neck fracture [Unknown]
  - Fall [Unknown]
  - Hypotension [Unknown]
